FAERS Safety Report 4394076-8 (Version None)
Quarter: 2004Q3

REPORT INFORMATION
  Report Type: 
  Country: None (occurrence: None)
  Receive Date: 20040710
  Receipt Date: 20040702
  Transmission Date: 20050211
  Serious: Yes (Hospitalization, Other)
  Sender: FDA-Public Use
  Company Number: LB-MERCK-0407USA00179

PATIENT
  Age: 66 Year

DRUGS (4)
  1. CORVASAL [Concomitant]
     Route: 065
  2. INDERAL [Concomitant]
     Route: 065
  3. ZOCOR [Suspect]
     Route: 048
  4. VASTAREL [Concomitant]
     Route: 065

REACTIONS (1)
  - CORONARY ARTERY DISEASE [None]
